FAERS Safety Report 8498086 (Version 3)
Quarter: 2013Q3

REPORT INFORMATION
  Report Type: Spontaneous
  Country: US (occurrence: US)
  Receive Date: 20120406
  Receipt Date: 20130719
  Transmission Date: 20140515
  Serious: Yes (Hospitalization)
  Sender: FDA-Public Use
  Company Number: US-GLAXOSMITHKLINE-A0791289A

PATIENT
  Age: 62 Year
  Sex: Female
  Weight: 90.9 kg

DRUGS (7)
  1. AVANDIA [Suspect]
     Indication: DIABETES MELLITUS
     Dosage: 4MG TWICE PER DAY
     Route: 048
     Dates: start: 19990622, end: 20070522
  2. GLUCOPHAGE [Concomitant]
  3. LEVOXYL [Concomitant]
  4. ATENOLOL [Concomitant]
  5. VYTORIN [Concomitant]
  6. ELAVIL [Concomitant]
  7. LOTREL [Concomitant]

REACTIONS (3)
  - Myocardial infarction [Recovering/Resolving]
  - Acute coronary syndrome [Unknown]
  - Coronary artery disease [Unknown]
